FAERS Safety Report 6480620-3 (Version None)
Quarter: 2009Q4

REPORT INFORMATION
  Report Type: 
  Country: None (occurrence: None)
  Receive Date: 20091202
  Receipt Date: 20091119
  Transmission Date: 20100525
  Serious: Yes (Hospitalization, Other)
  Sender: FDA-Public Use
  Company Number: 233342J09USA

PATIENT
  Age: 51 Year
  Sex: Female

DRUGS (1)
  1. REBIF [Suspect]
     Indication: MULTIPLE SCLEROSIS
     Dosage: 44 MCG, 3 IN 1 WEEKS, SUBCUTANEOUS
     Route: 058
     Dates: start: 20080820

REACTIONS (7)
  - BLOOD PRESSURE INCREASED [None]
  - CHOLELITHIASIS [None]
  - FALL [None]
  - HEPATIC CYST [None]
  - HYPOAESTHESIA [None]
  - LOCALISED INFECTION [None]
  - URINARY TRACT INFECTION [None]
